FAERS Safety Report 8052046-2 (Version None)
Quarter: 2012Q1

REPORT INFORMATION
  Report Type: 
  Country: None (occurrence: None)
  Receive Date: 20120118
  Receipt Date: 20120105
  Transmission Date: 20120608
  Serious: Yes (Hospitalization)
  Sender: FDA-Public Use
  Company Number: US-ELI_LILLY_AND_COMPANY-US201112002435

PATIENT
  Sex: Male

DRUGS (20)
  1. ZYRTEC [Concomitant]
  2. FINASTERIDE [Concomitant]
  3. OMEPRAZOLE [Concomitant]
  4. FORTEO [Suspect]
     Dosage: 20 UG, QD
  5. ARAVA [Concomitant]
  6. CALCIUM + VITAMIN D [Concomitant]
  7. CALCIUM [Concomitant]
  8. METOPROLOL TARTRATE [Concomitant]
  9. LOVAZA [Concomitant]
  10. LEFLUNOMIDE [Concomitant]
  11. PREDNISONE [Concomitant]
  12. WARFARIN SODIUM [Concomitant]
  13. MULTI-VITAMIN [Concomitant]
  14. ASPIRIN [Concomitant]
     Dosage: 81 MG, BID
  15. FUROSEMIDE [Concomitant]
  16. FORTEO [Suspect]
     Indication: OSTEOPOROSIS
     Dosage: 20 UG, QD
     Dates: start: 20110331
  17. FORTEO [Suspect]
     Dosage: 20 UG, QD
  18. ORENCIA [Concomitant]
     Dosage: UNK, MONTHLY (1/M)
  19. PLAQUENIL [Concomitant]
  20. TRAMADOL                           /00599201/ [Concomitant]
     Dosage: UNK, PRN

REACTIONS (5)
  - JOINT INSTABILITY [None]
  - PNEUMONIA [None]
  - ARTHRITIS [None]
  - ATRIAL FIBRILLATION [None]
  - DYSPNOEA [None]
